FAERS Safety Report 4636946-9 (Version None)
Quarter: 2005Q2

REPORT INFORMATION
  Report Type: 
  Country: None (occurrence: None)
  Receive Date: 20050414
  Receipt Date: 20050126
  Transmission Date: 20051028
  Serious: Yes (Congenital Anomaly)
  Sender: FDA-Public Use
  Company Number: 10130

PATIENT
  Sex: Male

DRUGS (1)
  1. METHOTREXATE [Suspect]

REACTIONS (6)
  - CONGENITAL HYDROCEPHALUS [None]
  - DRUG EXPOSURE DURING PREGNANCY [None]
  - HYPERTELORISM OF ORBIT [None]
  - MICROGNATHIA [None]
  - PREMATURE BABY [None]
  - SKULL MALFORMATION [None]
